FAERS Safety Report 5467750-X (Version None)
Quarter: 2007Q3

REPORT INFORMATION
  Report Type: 
  Country: None (occurrence: None)
  Receive Date: 20070926
  Receipt Date: 20070920
  Transmission Date: 20080115
  Serious: Yes (Life-Threatening, Hospitalization, Other)
  Sender: FDA-Public Use
  Company Number: PHEH2007US09938

PATIENT
  Age: 85 Year
  Sex: Female
  Weight: 40.929 kg

DRUGS (10)
  1. ZELNORM [Suspect]
     Dosage: 6 MG, BID
     Dates: start: 20030901, end: 20060101
  2. LOPRESSOR [Concomitant]
     Dosage: 75 MG, BID
  3. DARVOCET [Concomitant]
  4. LEVSIN [Concomitant]
  5. VITAMIN CAP [Concomitant]
  6. CALCIUM [Concomitant]
  7. PRILOSEC [Concomitant]
  8. WARFARIN SODIUM [Concomitant]
  9. FOSAMAX [Concomitant]
  10. LOVENOX [Concomitant]

REACTIONS (48)
  - ABDOMINAL ADHESIONS [None]
  - ABDOMINAL DISTENSION [None]
  - ABDOMINAL HERNIA [None]
  - ABDOMINAL PAIN [None]
  - ABDOMINAL TENDERNESS [None]
  - ACUTE PRERENAL FAILURE [None]
  - ADHESIOLYSIS [None]
  - ANAEMIA POSTOPERATIVE [None]
  - ANAL SPHINCTER ATONY [None]
  - ANXIETY DISORDER [None]
  - APPENDICECTOMY [None]
  - ATRIAL FIBRILLATION [None]
  - BLOOD CHLORIDE DECREASED [None]
  - BLOOD CREATININE INCREASED [None]
  - BLOOD PRESSURE DECREASED [None]
  - BLOOD UREA INCREASED [None]
  - CHOLECYSTECTOMY [None]
  - COLECTOMY [None]
  - COLOSTOMY [None]
  - DEHYDRATION [None]
  - DIVERTICULUM INTESTINAL [None]
  - FAECAL INCONTINENCE [None]
  - FAECAL VOLUME DECREASED [None]
  - GASTROOESOPHAGEAL REFLUX DISEASE [None]
  - HAEMORRHOID OPERATION [None]
  - HIP ARTHROPLASTY [None]
  - HIP FRACTURE [None]
  - HYPERLIPIDAEMIA [None]
  - HYPERTENSION [None]
  - HYPOXIA [None]
  - HYSTERECTOMY [None]
  - INTERNATIONAL NORMALISED RATIO INCREASED [None]
  - IRRITABLE BOWEL SYNDROME [None]
  - LAPAROTOMY [None]
  - MYOCARDIAL INFARCTION [None]
  - NAUSEA [None]
  - PNEUMONIA [None]
  - PULMONARY EMBOLISM [None]
  - PYREXIA [None]
  - RECTAL PROLAPSE [None]
  - SHIFT TO THE LEFT [None]
  - SMALL INTESTINAL OBSTRUCTION [None]
  - SURGERY [None]
  - THROMBOSIS [None]
  - URINE OUTPUT DECREASED [None]
  - VENA CAVA FILTER INSERTION [None]
  - VOMITING [None]
  - WHITE BLOOD CELLS URINE POSITIVE [None]
